FAERS Safety Report 10145996 (Version 1)
Quarter: 2014Q2

REPORT INFORMATION
  Report Type: Spontaneous
  Country: US (occurrence: US)
  Receive Date: 20140501
  Receipt Date: 20140501
  Transmission Date: 20141212
  Serious: Yes (Hospitalization, Disabling)
  Sender: FDA-Public Use
  Company Number: US-BAYER-2014-064384

PATIENT
  Age: 31 Year
  Sex: Female

DRUGS (4)
  1. YAZ [Suspect]
  2. YASMIN [Suspect]
     Dosage: UNK
     Dates: start: 200204, end: 200207
  3. YASMIN [Suspect]
     Dosage: UNK
  4. PAXIL [Concomitant]
     Dosage: 12.5 MG, DAILY

REACTIONS (11)
  - Intracardiac thrombus [None]
  - Pulmonary embolism [None]
  - Deep vein thrombosis [Recovered/Resolved]
  - Thrombophlebitis superficial [Recovered/Resolved]
  - Post thrombotic syndrome [None]
  - Pain in extremity [None]
  - Injury [None]
  - Emotional distress [None]
  - Anxiety [None]
  - Pain [None]
  - Fear of death [None]
